FAERS Safety Report 15115202 (Version 2)
Quarter: 2018Q4

REPORT INFORMATION
  Report Type: Spontaneous
  Country: US (occurrence: US)
  Receive Date: 20180706
  Receipt Date: 20181031
  Transmission Date: 20190204
  Serious: Yes (Death, Other)
  Sender: FDA-Public Use
  Company Number: US-SHIRE-US201823421

PATIENT
  Age: 61 Year
  Sex: Female

DRUGS (1)
  1. NATPARA (PARATHYROID HORMONE) [Suspect]
     Active Substance: PARATHYROID HORMONE
     Indication: HYPOPARATHYROIDISM
     Dosage: 75 ?G, 1X/DAY:QD
     Route: 065
     Dates: start: 20171208, end: 20180626

REACTIONS (7)
  - Joint dislocation [Fatal]
  - Wound [Fatal]
  - Fall [Fatal]
  - Haemorrhage [Fatal]
  - Tibial torsion [Fatal]
  - End stage renal disease [Fatal]
  - Multiple fractures [Fatal]

NARRATIVE: CASE EVENT DATE: 20180626
